FAERS Safety Report 17338698 (Version 1)
Quarter: 2020Q1

REPORT INFORMATION
  Report Type: Spontaneous
  Country: US (occurrence: US)
  Receive Date: 20200128
  Receipt Date: 20200128
  Transmission Date: 20200409
  Serious: Yes (Disabling)
  Sender: FDA-Public Use
  Company Number: None

PATIENT
  Age: 44 Year
  Sex: Female

DRUGS (1)
  1. OTEZLA [Suspect]
     Active Substance: APREMILAST
     Indication: PSORIATIC ARTHROPATHY
     Dates: start: 20191226, end: 20200118

REACTIONS (12)
  - Radiculopathy [None]
  - Headache [None]
  - Autoimmune disorder [None]
  - Nausea [None]
  - Spinal disorder [None]
  - Pain in extremity [None]
  - Joint stiffness [None]
  - Back pain [None]
  - Arthralgia [None]
  - Condition aggravated [None]
  - Diarrhoea [None]
  - Inflammation [None]

NARRATIVE: CASE EVENT DATE: 20191226
